FAERS Safety Report 13328988 (Version 1)
Quarter: 2017Q1

REPORT INFORMATION
  Report Type: Spontaneous
  Country: US (occurrence: US)
  Receive Date: 20170310
  Receipt Date: 20170310
  Transmission Date: 20170428
  Serious: No
  Sender: FDA-Public Use
  Company Number: None

PATIENT
  Age: 70 Year
  Sex: Female

DRUGS (2)
  1. TAMIFLU [Concomitant]
     Active Substance: OSELTAMIVIR PHOSPHATE
  2. IBRANCE [Suspect]
     Active Substance: PALBOCICLIB
     Indication: BREAST CANCER
     Dosage: 100MG DAILY FOR 21 DAYS ORAL
     Route: 048
     Dates: start: 20170116

REACTIONS (1)
  - Influenza [None]

NARRATIVE: CASE EVENT DATE: 20170309
